FAERS Safety Report 6683446-0 (Version None)
Quarter: 2010Q2

REPORT INFORMATION
  Report Type: 
  Country: None (occurrence: None)
  Receive Date: 20100415
  Receipt Date: 20100408
  Transmission Date: 20101027
  Serious: Yes (Other)
  Sender: FDA-Public Use
  Company Number: US-ABBOTT-10P-163-0637500-00

PATIENT
  Sex: Female
  Weight: 108.96 kg

DRUGS (22)
  1. VICODIN [Suspect]
     Indication: ARTHRALGIA
     Dosage: 7.5MG/325 MG EVERY 4 HOURS
     Route: 048
     Dates: start: 20060101
  2. ZYRTEC [Suspect]
     Indication: HYPERSENSITIVITY
     Route: 048
     Dates: start: 20090101
  3. GABAPENTIN [Suspect]
     Indication: DIABETIC NEUROPATHY
     Route: 048
     Dates: start: 20040101
  4. ZANAFLEX [Suspect]
     Indication: MUSCLE SPASMS
     Route: 048
     Dates: start: 20090101
  5. VALSARTAN [Suspect]
     Indication: HYPERTENSION
     Route: 048
     Dates: start: 20020101
  6. BUPROPION [Suspect]
     Indication: DEPRESSION
     Route: 048
  7. LOZOL [Suspect]
     Indication: FLUID RETENTION
     Route: 048
     Dates: start: 20020101
  8. METFORMIN HCL [Suspect]
     Indication: DIABETES MELLITUS
     Route: 048
  9. METFORMIN HYDROCHLORIDE/SITAGLIPTIN [Suspect]
     Indication: DIABETES MELLITUS
     Dosage: 50/500MG DAILY
     Route: 048
  10. KLONOPIN [Suspect]
     Indication: ANXIETY
     Route: 048
  11. PRILOSEC [Suspect]
     Indication: GASTROOESOPHAGEAL REFLUX DISEASE
     Route: 048
  12. CARAFATE [Suspect]
     Indication: GASTROOESOPHAGEAL REFLUX DISEASE
     Route: 048
  13. AGGRENOX [Suspect]
     Indication: DRUG USE FOR UNKNOWN INDICATION
     Route: 048
     Dates: start: 20091201
  14. FLONASE [Suspect]
     Indication: HYPERSENSITIVITY
     Dosage: 2 SPRAYS PER NOSTRIL
     Route: 045
  15. FLOVENT [Suspect]
     Indication: ASTHMA
     Dosage: 2 PUFF 2X
  16. VENTOLIN [Suspect]
     Indication: ASTHMA
     Dosage: 2 PUFFS EVERY 2
  17. IMITREX [Suspect]
     Indication: MIGRAINE
     Route: 048
  18. NITROLINGUAL [Suspect]
     Indication: CHEST PAIN
     Dosage: SPRAY AS NEEDED
     Route: 050
  19. EPIPEN [Suspect]
     Indication: HYPERSENSITIVITY
     Route: 062
  20. LORTAB [Suspect]
     Indication: DRUG USE FOR UNKNOWN INDICATION
     Route: 048
  21. SIMVASTATIN [Suspect]
     Indication: DRUG USE FOR UNKNOWN INDICATION
     Route: 048
  22. MULTI-VITAMINS [Suspect]
     Indication: DRUG USE FOR UNKNOWN INDICATION
     Route: 048

REACTIONS (2)
  - CARDIAC DISORDER [None]
  - MEMORY IMPAIRMENT [None]
